FAERS Safety Report 23757450 (Version 1)
Quarter: 2024Q2

REPORT INFORMATION
  Report Type: Spontaneous
  Country: US (occurrence: US)
  Receive Date: 20240418
  Receipt Date: 20240418
  Transmission Date: 20240715
  Serious: Yes (Hospitalization, Other)
  Sender: FDA-Public Use
  Company Number: US-FreseniusKabi-FK202406412

PATIENT
  Age: 54 Year
  Sex: Female

DRUGS (11)
  1. FOSPHENYTOIN [Suspect]
     Active Substance: FOSPHENYTOIN
     Indication: Seizure
  2. TOPIRAMATE [Concomitant]
     Active Substance: TOPIRAMATE
     Indication: Seizure
  3. LEVETIRACETAM [Concomitant]
     Active Substance: LEVETIRACETAM
     Indication: Seizure
  4. LEVETIRACETAM [Concomitant]
     Active Substance: LEVETIRACETAM
  5. LEVETIRACETAM [Concomitant]
     Active Substance: LEVETIRACETAM
  6. VALPROIC ACID [Concomitant]
     Active Substance: VALPROIC ACID
     Indication: Seizure
  7. VALPROIC ACID [Concomitant]
     Active Substance: VALPROIC ACID
  8. VALPROIC ACID [Concomitant]
     Active Substance: VALPROIC ACID
  9. OXCARBAZEPINE [Concomitant]
     Active Substance: OXCARBAZEPINE
     Indication: Seizure
  10. OXCARBAZEPINE [Concomitant]
     Active Substance: OXCARBAZEPINE
  11. PERAMPANEL [Concomitant]
     Active Substance: PERAMPANEL
     Indication: Seizure

REACTIONS (2)
  - Respiratory failure [Unknown]
  - Arrhythmia [Unknown]
